FAERS Safety Report 5186459-3 (Version None)
Quarter: 2006Q4

REPORT INFORMATION
  Report Type: 
  Country: None (occurrence: None)
  Receive Date: 20061213
  Receipt Date: 20061127
  Transmission Date: 20070319
  Serious: Yes (Death)
  Sender: FDA-Public Use
  Company Number: 2006002227

PATIENT
  Age: 56 Year
  Sex: Female

DRUGS (5)
  1. ERLOTINIB(TABLET) (ERLOTINIB HCL) [Suspect]
     Indication: BRONCHIAL CARCINOMA
     Dosage: 150 MG (QD), ORAL
     Route: 048
     Dates: start: 20060718
  2. ERLOTINIB(TABLET) (ERLOTINIB HCL) [Suspect]
     Indication: LUNG NEOPLASM MALIGNANT
     Dosage: 150 MG (QD), ORAL
     Route: 048
     Dates: start: 20060718
  3. DEXAMETHASONE TAB [Concomitant]
  4. LOPERAMIDE HCL [Concomitant]
  5. ZOMETA [Concomitant]

REACTIONS (1)
  - METASTASES TO CENTRAL NERVOUS SYSTEM [None]
